FAERS Safety Report 5819949-8 (Version None)
Quarter: 2008Q3

REPORT INFORMATION
  Report Type: 
  Country: None (occurrence: None)
  Receive Date: 20080721
  Receipt Date: 20080709
  Transmission Date: 20090109
  Serious: Yes (Hospitalization)
  Sender: FDA-Public Use
  Company Number: GXBR2008US01463

PATIENT
  Sex: Male

DRUGS (5)
  1. CEFTRIAXONE [Suspect]
     Indication: ARTHRITIS BACTERIAL
     Dates: start: 20060528
  2. VANCOMYCIN [Suspect]
     Indication: ARTHRITIS BACTERIAL
     Dosage: 1 G, Q12H, INTRAVENOUS
     Route: 042
     Dates: start: 20060524
  3. TYGACIL [Concomitant]
  4. DIFLUCAN [Concomitant]
  5. PRIMAXIN [Concomitant]

REACTIONS (13)
  - DISSEMINATED INTRAVASCULAR COAGULATION [None]
  - ECCHYMOSIS [None]
  - GASTROENTERITIS [None]
  - GASTROINTESTINAL HAEMORRHAGE [None]
  - HYPONATRAEMIA [None]
  - MOUTH HAEMORRHAGE [None]
  - RENAL FAILURE ACUTE [None]
  - RHABDOMYOLYSIS [None]
  - SEPSIS SYNDROME [None]
  - STEVENS-JOHNSON SYNDROME [None]
  - TACHYCARDIA [None]
  - TOXIC EPIDERMAL NECROLYSIS [None]
  - VOMITING [None]
